FAERS Safety Report 10180301 (Version 1)
Quarter: 2014Q2

REPORT INFORMATION
  Report Type: Spontaneous
  Country: FR (occurrence: None)
  Receive Date: 20140515
  Receipt Date: 20140515
  Transmission Date: 20141212
  Serious: Yes (Other)
  Sender: FDA-Public Use
  Company Number: FR14001629

PATIENT
  Age: 8 Year
  Sex: Female

DRUGS (1)
  1. ROZEX (METRONIDAZOLE) [Suspect]
     Dosage: 0.75 % ( 1 DOSAGE FORMS), TOPICAL
     Route: 061
     Dates: start: 20140406, end: 20140406

REACTIONS (4)
  - Accidental exposure to product by child [None]
  - Application site erythema [None]
  - Dry skin [None]
  - Erythema [None]
